FAERS Safety Report 12899816 (Version 2)
Quarter: 2016Q4

REPORT INFORMATION
  Report Type: Spontaneous
  Country: US (occurrence: US)
  Receive Date: 20161101
  Receipt Date: 20161109
  Transmission Date: 20170207
  Serious: Yes (Hospitalization, Other)
  Sender: FDA-Public Use
  Company Number: US-PFIZER INC-2016505198

PATIENT
  Age: 40 Year
  Sex: Male
  Weight: 122 kg

DRUGS (9)
  1. VANCOMYCIN HCL [Suspect]
     Active Substance: VANCOMYCIN HYDROCHLORIDE
     Dosage: UNK
     Route: 065
     Dates: end: 20121202
  2. BENICAR [Suspect]
     Active Substance: OLMESARTAN MEDOXOMIL
     Indication: HYPERTENSION
     Dosage: 40 MG, 1X/DAY
     Route: 048
     Dates: start: 2009, end: 201407
  3. BYSTOLIC [Concomitant]
     Active Substance: NEBIVOLOL HYDROCHLORIDE
     Dosage: 20 MG, UNK
  4. BENICAR HCT [Suspect]
     Active Substance: HYDROCHLOROTHIAZIDE\OLMESARTAN MEDOXOMIL
     Indication: HYPERTENSION
     Dosage: 25/40 MG, 1X/DAY
     Route: 048
     Dates: start: 201001, end: 201407
  5. TRIBENZOR [Suspect]
     Active Substance: AMLODIPINE BESYLATE\HYDROCHLOROTHIAZIDE\OLMESARTAN MEDOXOMIL
     Indication: HYPERTENSION
     Dosage: 40/10/25 MG, 1X/DAY
     Route: 048
     Dates: start: 201001, end: 201407
  6. AZOR [Suspect]
     Active Substance: AMLODIPINE BESYLATE\OLMESARTAN MEDOXOMIL
     Indication: HYPERTENSION
     Dosage: 20/5 MG,1X/DAY
     Route: 048
     Dates: start: 201001, end: 201407
  7. HYDROCHLOROTHIAZIDE. [Concomitant]
     Active Substance: HYDROCHLOROTHIAZIDE
     Dosage: 25 MG, UNK
  8. COLCRYS [Concomitant]
     Active Substance: COLCHICINE
     Dosage: 0.6 MG, UNK
  9. NOVOLIN [Concomitant]
     Active Substance: INSULIN HUMAN
     Dosage: UNK

REACTIONS (9)
  - Cholecystitis chronic [Recovered/Resolved]
  - Haemorrhoids [Unknown]
  - Hiatus hernia [Unknown]
  - Acute kidney injury [Recovering/Resolving]
  - Gastrooesophageal reflux disease [Unknown]
  - Haematochezia [Unknown]
  - Hepatic steatosis [Unknown]
  - Dizziness [Unknown]
  - Malabsorption [Unknown]

NARRATIVE: CASE EVENT DATE: 2010
